FAERS Safety Report 4414267-7 (Version None)
Quarter: 2004Q3

REPORT INFORMATION
  Report Type: 
  Country: None (occurrence: None)
  Receive Date: 20040729
  Receipt Date: 20040716
  Transmission Date: 20050211
  Serious: Yes (Other)
  Sender: FDA-Public Use
  Company Number: 2004022018

PATIENT
  Age: 76 Year
  Sex: Male
  Weight: 80 kg

DRUGS (5)
  1. NORVASC [Suspect]
     Indication: HYPERTENSION
     Dosage: 5 MG (1 IN 1 D) , ORAL
     Route: 048
     Dates: start: 19990205, end: 20040313
  2. DOXAZOSIN MESYLATE [Suspect]
     Indication: HYPERTENSION
     Dosage: 1 MG (1 IN 1 D) , ORAL
     Route: 048
     Dates: start: 19980213
  3. CANDESARTAN CILEXETIL (CANDESARTAN CILEXETIL) [Suspect]
     Indication: HYPERTENSION
     Dosage: 8 MG (1D), ORAL
     Route: 048
     Dates: start: 20040406, end: 20040409
  4. VOGLIBOSE (VOGLIBOSE) [Suspect]
     Indication: GLYCOSYLATED HAEMOGLOBIN INCREASED
     Dosage: 0.3 MG, ORAL
     Route: 048
     Dates: start: 20021217
  5. CAFFEINE (CAFFEINE) [Suspect]
     Indication: ILL-DEFINED DISORDER
     Dosage: ORAL
     Route: 048

REACTIONS (7)
  - ARTERIOSCLEROSIS [None]
  - BLOOD PRESSURE DECREASED [None]
  - CEREBELLAR INFARCTION [None]
  - DIPLOPIA [None]
  - DIZZINESS [None]
  - DRUG EFFECT DECREASED [None]
  - NERVOUSNESS [None]
